FAERS Safety Report 22935523 (Version 2)
Quarter: 2024Q2

REPORT INFORMATION
  Report Type: Spontaneous
  Country: DE (occurrence: DE)
  Receive Date: 20230912
  Receipt Date: 20240617
  Transmission Date: 20240715
  Serious: Yes (Other)
  Sender: FDA-Public Use
  Company Number: DE-LUNDBECK-DKLU3060485

PATIENT
  Sex: Male

DRUGS (4)
  1. ESCITALOPRAM [Suspect]
     Active Substance: ESCITALOPRAM OXALATE
     Indication: Anxiety disorder
     Route: 048
     Dates: start: 2015
  2. ESCITALOPRAM [Suspect]
     Active Substance: ESCITALOPRAM OXALATE
     Indication: Anxiety disorder
     Dosage: DAILY DOSE: 5.0 MG, FORM: UNKNOWN
     Route: 048
     Dates: start: 2023
  3. ESCITALOPRAM [Suspect]
     Active Substance: ESCITALOPRAM OXALATE
     Indication: Anxiety disorder
     Dosage: DAILY DOSE: 2.5 MG, FORM: UNKNOWN
     Route: 048
     Dates: start: 202210
  4. ESCITALOPRAM [Suspect]
     Active Substance: ESCITALOPRAM OXALATE
     Indication: Anxiety disorder
     Dosage: DAILY DOSE: 15.0 MG
     Route: 048
     Dates: end: 202210

REACTIONS (4)
  - Erectile dysfunction [Recovered/Resolved]
  - Underdose [Unknown]
  - Muscle twitching [Recovered/Resolved]
  - Somatic symptom disorder [Recovered/Resolved]
